FAERS Safety Report 11320839 (Version 1)
Quarter: 2015Q3

REPORT INFORMATION
  Report Type: Spontaneous
  Country: US (occurrence: US)
  Receive Date: 20150729
  Receipt Date: 20150729
  Transmission Date: 20151125
  Serious: No
  Sender: FDA-Public Use
  Company Number: US-MYLANLABS-2014M1006245

PATIENT
  Age: 80 Year
  Sex: Female

DRUGS (1)
  1. CLONIDINE HYDROCHLORIDE. [Suspect]
     Active Substance: CLONIDINE HYDROCHLORIDE
     Indication: BLOOD PRESSURE INCREASED
     Dosage: 0.1 MG, BID
     Route: 048
     Dates: start: 20140918

REACTIONS (2)
  - Somnolence [Not Recovered/Not Resolved]
  - Thirst [Not Recovered/Not Resolved]

NARRATIVE: CASE EVENT DATE: 201409
